FAERS Safety Report 24170861 (Version 5)
Quarter: 2025Q1

REPORT INFORMATION
  Report Type: Spontaneous
  Country: FR (occurrence: FR)
  Receive Date: 20240805
  Receipt Date: 20250225
  Transmission Date: 20250408
  Serious: Yes (Death, Life-Threatening, Hospitalization, Other)
  Sender: PFIZER
  Company Number: FR-PFIZER INC-PV202400100533

PATIENT
  Age: 35 Year
  Sex: Male
  Weight: 66.5 kg

DRUGS (7)
  1. OXBRYTA [Suspect]
     Active Substance: VOXELOTOR
     Indication: Anaemia
     Dosage: 1500 MG, DAILY
     Route: 048
     Dates: start: 202207, end: 20240708
  2. OXBRYTA [Suspect]
     Active Substance: VOXELOTOR
     Dosage: 2 TABLETS DAILY
     Route: 048
     Dates: start: 20240709, end: 20240729
  3. OXBRYTA [Suspect]
     Active Substance: VOXELOTOR
     Dosage: 2 TABLETS DAILY
     Route: 048
     Dates: start: 20240730, end: 20240730
  4. OXBRYTA [Suspect]
     Active Substance: VOXELOTOR
     Dosage: 1 TABLET DAILY
     Route: 048
     Dates: start: 20240730, end: 20240801
  5. FOLIC ACID [Concomitant]
     Active Substance: FOLIC ACID
     Indication: Anaemia
     Dosage: AS LONG TERM TREATMENT
  6. FOLIC ACID [Concomitant]
     Active Substance: FOLIC ACID
     Dosage: 10 MG, DAILY
     Dates: start: 20240730
  7. ACETAMINOPHEN [Concomitant]
     Active Substance: ACETAMINOPHEN
     Indication: Headache
     Dosage: 1 G, 3X/DAY
     Dates: start: 20240726, end: 20240731

REACTIONS (15)
  - Off label use [Fatal]
  - Pneumococcal sepsis [Fatal]
  - Haemolysis [Fatal]
  - Multiple organ dysfunction syndrome [Fatal]
  - Sickle cell anaemia with crisis [Fatal]
  - Ischaemic stroke [Not Recovered/Not Resolved]
  - Atrioventricular block [Unknown]
  - Leukocytosis [Unknown]
  - Thrombocytopenia [Unknown]
  - Vertigo [Not Recovered/Not Resolved]
  - Headache [Not Recovered/Not Resolved]
  - Dizziness [Unknown]
  - Priapism [Recovering/Resolving]
  - Hypoxia [Unknown]
  - Abdominal pain [Unknown]

NARRATIVE: CASE EVENT DATE: 20230816
